FAERS Safety Report 9124844 (Version 1)
Quarter: 2013Q1

REPORT INFORMATION
  Report Type: Spontaneous
  Country: US (occurrence: US)
  Receive Date: 20130116
  Receipt Date: 20130116
  Transmission Date: 20140127
  Serious: Yes (Hospitalization, Other)
  Sender: FDA-Public Use
  Company Number: US-ELI_LILLY_AND_COMPANY-US201301000817

PATIENT
  Age: 52 Year
  Sex: Female

DRUGS (6)
  1. FORTEO [Suspect]
     Indication: OSTEOPOROSIS
     Dosage: 20 UG, QD
     Dates: start: 2008, end: 2009
  2. VITAMIN D [Concomitant]
     Dosage: 50000 IU, WEEKLY (1/W)
  3. PANTOPRAZOLE SODIUM [Concomitant]
     Indication: DYSPEPSIA
     Dosage: 40 MG, QD
  4. SPIRONOLACTONE [Concomitant]
     Indication: LYMPHADENOPATHY
     Dosage: 100 MG, QD
  5. WELLBUTRIN [Concomitant]
     Dosage: 150 MG, QD
  6. ACTONEL [Concomitant]
     Dosage: UNK, MONTHLY (1/M)

REACTIONS (6)
  - Hip fracture [Unknown]
  - Upper limb fracture [Unknown]
  - Upper limb fracture [Unknown]
  - Fear [Unknown]
  - Pain [Unknown]
  - Drug ineffective [Unknown]
